FAERS Safety Report 9884379 (Version 1)
Quarter: 2014Q1

REPORT INFORMATION
  Report Type: Spontaneous
  Country: US (occurrence: None)
  Receive Date: 20140207
  Receipt Date: 20140207
  Transmission Date: 20141002
  Serious: Yes (Disabling, Other)
  Sender: FDA-Public Use
  Company Number: None

PATIENT
  Age: 72 Year
  Sex: Female
  Weight: 81.65 kg

DRUGS (10)
  1. CIPROFLOXACIN [Suspect]
     Indication: PREOPERATIVE CARE
     Route: 048
     Dates: start: 20131121, end: 20131121
  2. SYNTHROID [Concomitant]
  3. ESTRADOIL [Concomitant]
  4. PROBIOTIC [Concomitant]
  5. RED YEAST RICE [Concomitant]
  6. COQ10 [Concomitant]
  7. PREVACID [Concomitant]
  8. MIRALAX [Concomitant]
  9. VIT C [Concomitant]
  10. VIT D [Concomitant]

REACTIONS (3)
  - Weight bearing difficulty [None]
  - Pain in extremity [None]
  - Activities of daily living impaired [None]
